FAERS Safety Report 13688398 (Version 1)
Quarter: 2017Q2

REPORT INFORMATION
  Report Type: Report from Study
  Country: US (occurrence: US)
  Receive Date: 20170626
  Receipt Date: 20170626
  Transmission Date: 20170830
  Serious: Yes (Hospitalization)
  Sender: FDA-Public Use
  Company Number: US-GILEAD-2017-0279842

PATIENT
  Age: 63 Year
  Sex: Male

DRUGS (14)
  1. TRAMADOL HCL [Concomitant]
     Active Substance: TRAMADOL HYDROCHLORIDE
  2. KLOR-CON M10 [Concomitant]
     Active Substance: POTASSIUM CHLORIDE
  3. DIGITEK [Concomitant]
     Active Substance: DIGOXIN
  4. MELOXICAM. [Concomitant]
     Active Substance: MELOXICAM
  5. LORATADINE. [Concomitant]
     Active Substance: LORATADINE
  6. ERGOCALCIFEROL. [Concomitant]
     Active Substance: ERGOCALCIFEROL
  7. REMODULIN [Concomitant]
     Active Substance: TREPROSTINIL
  8. ADCIRCA [Concomitant]
     Active Substance: TADALAFIL
  9. FERROUS SULFATE. [Concomitant]
     Active Substance: FERROUS SULFATE
  10. ASPIRIN                            /00002701/ [Concomitant]
     Active Substance: ASPIRIN
  11. AMBRISENTAN [Suspect]
     Active Substance: AMBRISENTAN
     Indication: PULMONARY HYPERTENSION
     Dosage: 10 MG, QD
     Route: 065
     Dates: start: 20151029
  12. VITAMIN D                          /00107901/ [Concomitant]
     Active Substance: ERGOCALCIFEROL
  13. PROMETHAZINE HCL [Concomitant]
     Active Substance: PROMETHAZINE HYDROCHLORIDE
  14. PRAVASTATIN SODIUM. [Concomitant]
     Active Substance: PRAVASTATIN SODIUM

REACTIONS (2)
  - Dyspnoea [Not Recovered/Not Resolved]
  - Blood test abnormal [Not Recovered/Not Resolved]

NARRATIVE: CASE EVENT DATE: 20170522
